FAERS Safety Report 13768881 (Version 1)
Quarter: 2017Q3

REPORT INFORMATION
  Report Type: Spontaneous
  Country: US (occurrence: US)
  Receive Date: 20170719
  Receipt Date: 20170719
  Transmission Date: 20171127
  Serious: No
  Sender: FDA-Public Use
  Company Number: US-OTSUKA-2017_012411

PATIENT
  Age: 22 Year
  Sex: Male

DRUGS (1)
  1. REXULTI [Suspect]
     Active Substance: BREXPIPRAZOLE
     Indication: SCHIZOPHRENIA
     Dosage: 1 MG, QD
     Route: 048

REACTIONS (2)
  - Nausea [Unknown]
  - Abdominal discomfort [Unknown]
